FAERS Safety Report 6518193-9 (Version None)
Quarter: 2009Q4

REPORT INFORMATION
  Report Type: 
  Country: None (occurrence: None)
  Receive Date: 20091218
  Receipt Date: 20091204
  Transmission Date: 20100525
  Serious: Yes (Other)
  Sender: FDA-Public Use
  Company Number: 1000010774

PATIENT
  Age: 40 Year
  Sex: Female

DRUGS (4)
  1. LEXAPRO [Suspect]
     Indication: POST-TRAUMATIC STRESS DISORDER
     Dosage: 10 MG (10 MG, 1 IN 1 D), ORAL; 20 MG (20 MG, 1 IIN 1 D), ORAL
     Route: 048
     Dates: start: 20081201, end: 20090601
  2. LEXAPRO [Suspect]
     Indication: POST-TRAUMATIC STRESS DISORDER
     Dosage: 10 MG (10 MG, 1 IN 1 D), ORAL; 20 MG (20 MG, 1 IIN 1 D), ORAL
     Route: 048
     Dates: start: 20090601
  3. METFORMIN (TABLETS) [Concomitant]
  4. METOPROLOL SUCCINATE RETARD [Concomitant]

REACTIONS (6)
  - FATIGUE [None]
  - FEELING ABNORMAL [None]
  - HYPERHIDROSIS [None]
  - MEMORY IMPAIRMENT [None]
  - SLEEP DISORDER [None]
  - WEIGHT INCREASED [None]
